FAERS Safety Report 23328761 (Version 1)
Quarter: 2023Q4

REPORT INFORMATION
  Report Type: Report from Study
  Country: US (occurrence: US)
  Receive Date: 20231221
  Receipt Date: 20231221
  Transmission Date: 20240109
  Serious: Yes (Hospitalization)
  Sender: FDA-Public Use
  Company Number: US-ABBVIE-5552132

PATIENT
  Sex: Female

DRUGS (3)
  1. SKYRIZI [Suspect]
     Active Substance: RISANKIZUMAB-RZAA
     Indication: Psoriatic arthropathy
     Dosage: TIME INTERVAL: TOTAL: WEEK 0,?FORM STRENGTH 150 MILLIGRAM
     Route: 058
     Dates: start: 20220208, end: 20230208
  2. SKYRIZI [Suspect]
     Active Substance: RISANKIZUMAB-RZAA
     Indication: Psoriasis
     Dosage: TIME INTERVAL: TOTAL: WEEK 4 ?FORM STRENGTH 150 MILLIGRAM
     Route: 058
     Dates: start: 202203, end: 202203
  3. SKYRIZI [Suspect]
     Active Substance: RISANKIZUMAB-RZAA
     Dosage: EVERY 12 WEEK?FORM STRENGTH 150 MILLIGRAM
     Route: 058
     Dates: start: 202205

REACTIONS (2)
  - Chest pain [Unknown]
  - Muscle spasms [Unknown]
